FAERS Safety Report 9154490 (Version 1)
Quarter: 2013Q1

REPORT INFORMATION
  Report Type: Spontaneous
  Country: US (occurrence: None)
  Receive Date: 20130205
  Receipt Date: 20130205
  Transmission Date: 20140127
  Serious: Yes (Hospitalization)
  Sender: FDA-Public Use
  Company Number: AUR-APL-2013-01051

PATIENT
  Age: 43 Year
  Sex: Female
  Weight: 115 kg

DRUGS (8)
  1. METOPROLOL [Suspect]
     Indication: HYPERTENSION
  2. LYRICA (PREGABALIN) [Suspect]
     Indication: SLEEP APNOEA SYNDROME
     Dosage: (100 MG,2 IN 1 D)
  3. LYRICA (PREGABALIN) [Suspect]
     Indication: DYSKINESIA
     Dosage: (100 MG,2 IN 1 D)
  4. LYRICA (PREGABALIN) [Suspect]
     Indication: MUSCLE SPASMS
     Dosage: (100 MG,2 IN 1 D)
  5. LYRICA (PREGABALIN) [Suspect]
     Indication: PAIN IN EXTREMITY
     Dosage: (100 MG,2 IN 1 D)
  6. INSULIN (INSULIN) [Concomitant]
  7. LISINOPRIL (LISINOPRIL) [Concomitant]
  8. FUROSEMIDE (FUROSEMIDE) [Concomitant]

REACTIONS (4)
  - Arnold-Chiari malformation [None]
  - Post procedural complication [None]
  - Unevaluable event [None]
  - Hypotension [None]
